FAERS Safety Report 8165704-6 (Version None)
Quarter: 2012Q1

REPORT INFORMATION
  Report Type: 
  Country: None (occurrence: None)
  Receive Date: 20120223
  Receipt Date: 20120223
  Transmission Date: 20120608
  Serious: Yes (Other)
  Sender: FDA-Public Use
  Company Number: None

PATIENT
  Age: 79 Year
  Sex: Male
  Weight: 77.1115 kg

DRUGS (1)
  1. LEVOFLOXACIN [Suspect]
     Indication: INFECTION PROPHYLAXIS
     Dosage: 1 PER DAY FOR 10 DAYS
     Dates: start: 20111221, end: 20111225

REACTIONS (1)
  - TENDON RUPTURE [None]
